FAERS Safety Report 9938124 (Version 1)
Quarter: 2014Q1

REPORT INFORMATION
  Report Type: Spontaneous
  Country: FR (occurrence: FR)
  Receive Date: 20140303
  Receipt Date: 20140303
  Transmission Date: 20141002
  Serious: Yes (Hospitalization)
  Sender: FDA-Public Use
  Company Number: FR-ORION CORPORATION ORION PHARMA-ENTC2014-0082

PATIENT
  Age: 84 Year
  Sex: Female

DRUGS (7)
  1. STALEVO [Suspect]
     Indication: PARKINSON^S DISEASE
     Dosage: STRENGTH: 100/25/200 MG
     Route: 065
     Dates: start: 2008, end: 201309
  2. STALEVO [Suspect]
     Dosage: STRENGTH: 100/25/200 MG
     Route: 065
     Dates: start: 201309
  3. OMEPRAZOLE [Concomitant]
     Route: 065
  4. FOSAMAX [Concomitant]
     Route: 065
  5. PREVISCAN [Concomitant]
     Route: 065
  6. SEROPLEX [Concomitant]
     Route: 065
  7. DOLIPRANE [Concomitant]
     Indication: PAIN
     Route: 065

REACTIONS (13)
  - Fall [Recovered/Resolved]
  - Radius fracture [Recovered/Resolved]
  - Intervertebral disc compression [Recovered/Resolved]
  - Abasia [Recovered/Resolved]
  - Bedridden [Recovered/Resolved]
  - Weight decreased [Recovered/Resolved]
  - Cognitive disorder [Recovered/Resolved]
  - Agitation [Recovered/Resolved]
  - Hallucination [Recovered/Resolved]
  - Confusional state [Recovered/Resolved with Sequelae]
  - Insomnia [Recovered/Resolved]
  - Amyotrophy [Recovered/Resolved]
  - Infection [Recovered/Resolved]
